FAERS Safety Report 10472485 (Version 2)
Quarter: 2014Q3

REPORT INFORMATION
  Report Type: Spontaneous
  Country: FR (occurrence: FR)
  Receive Date: 20140924
  Receipt Date: 20140924
  Transmission Date: 20150326
  Serious: Yes (Hospitalization, Other)
  Sender: FDA-Public Use
  Company Number: FR-JNJFOC-20140907966

PATIENT
  Sex: Male

DRUGS (3)
  1. XARELTO [Suspect]
     Active Substance: RIVAROXABAN
     Indication: EMBOLISM VENOUS
     Route: 048
     Dates: start: 201311, end: 20140803
  2. FLECAINE [Concomitant]
     Active Substance: FLECAINIDE
     Indication: PRODUCT USED FOR UNKNOWN INDICATION
     Route: 065
     Dates: start: 201311, end: 201408
  3. FLECAINE [Concomitant]
     Active Substance: FLECAINIDE
     Indication: PRODUCT USED FOR UNKNOWN INDICATION
     Route: 065
     Dates: start: 20130731

REACTIONS (5)
  - Fatigue [Unknown]
  - Liver function test abnormal [Recovered/Resolved with Sequelae]
  - Pyrexia [Unknown]
  - Agranulocytosis [Recovered/Resolved with Sequelae]
  - Sciatica [Unknown]
